FAERS Safety Report 25911513 (Version 1)
Quarter: 2025Q4

REPORT INFORMATION
  Report Type: Spontaneous
  Country: EU (occurrence: EU)
  Receive Date: 20251013
  Receipt Date: 20251013
  Transmission Date: 20260117
  Serious: Yes (Other)
  Sender: JOHNSON AND JOHNSON
  Company Number: None

PATIENT
  Age: 52 Year
  Sex: Female
  Weight: 67 kg

DRUGS (4)
  1. STELARA [Suspect]
     Active Substance: USTEKINUMAB
     Indication: Product used for unknown indication
     Dosage: 45 MG EVERY 12 WEEKS
     Route: 058
     Dates: start: 20191118, end: 20240130
  2. STELARA [Suspect]
     Active Substance: USTEKINUMAB
  3. METHOTREXATE [Suspect]
     Active Substance: METHOTREXATE
     Indication: Product used for unknown indication
     Dosage: 5 MG/WEEK
     Route: 048
     Dates: start: 20180101, end: 20250630
  4. TALTZ [Suspect]
     Active Substance: IXEKIZUMAB
     Indication: Product used for unknown indication
     Dosage: 80 MG MONTHLY
     Route: 058
     Dates: start: 20240426, end: 20250630

REACTIONS (1)
  - Follicle centre lymphoma, follicular grade I, II, III stage IV [Unknown]

NARRATIVE: CASE EVENT DATE: 20250716
